FAERS Safety Report 8476259-0 (Version None)
Quarter: 2012Q2

REPORT INFORMATION
  Report Type: 
  Country: None (occurrence: None)
  Receive Date: 20120628
  Receipt Date: 20120619
  Transmission Date: 20120825
  Serious: Yes (Other)
  Sender: FDA-Public Use
  Company Number: US-JNJFOC-20120610211

PATIENT
  Sex: Male
  Weight: 80.29 kg

DRUGS (14)
  1. HYDROXYZINE [Concomitant]
     Indication: ANXIETY
     Route: 048
     Dates: end: 20120619
  2. NEXIUM [Concomitant]
     Indication: GASTROOESOPHAGEAL REFLUX DISEASE
     Route: 048
  3. VENTOLIN HFA [Concomitant]
     Indication: EMPHYSEMA
     Dosage: AS NEEDED
     Route: 055
  4. LISINOPRIL [Concomitant]
     Indication: BLOOD PRESSURE
     Dosage: 10-12.5 MG
     Route: 048
  5. PHENERGAN HCL [Concomitant]
     Indication: IRRITABLE BOWEL SYNDROME
     Dosage: AS NEEDED
     Route: 048
  6. CLONIDINE [Concomitant]
     Indication: BLOOD PRESSURE
     Route: 048
  7. FENTANYL-100 [Suspect]
     Route: 062
     Dates: start: 20110101, end: 20110101
  8. HYDROXYZINE [Concomitant]
     Indication: STRESS
     Route: 048
     Dates: end: 20120619
  9. PHENERGAN HCL [Concomitant]
     Indication: ABDOMINAL DISCOMFORT
     Dosage: AS NEEDED
     Route: 048
  10. SPIRIVA [Concomitant]
     Indication: EMPHYSEMA
     Route: 055
  11. FENTANYL-100 [Suspect]
     Indication: ARTHRITIS
     Route: 062
     Dates: start: 20120529, end: 20120601
  12. FENTANYL-100 [Suspect]
     Route: 062
     Dates: start: 20110101, end: 20110101
  13. FENTANYL-100 [Suspect]
     Indication: FIBROMYALGIA
     Route: 062
     Dates: start: 20120529, end: 20120601
  14. DICYCLOMINE [Concomitant]
     Indication: ABDOMINAL PAIN UPPER
     Route: 048

REACTIONS (5)
  - RASH [None]
  - VOMITING [None]
  - TREATMENT NONCOMPLIANCE [None]
  - COMA [None]
  - MEMORY IMPAIRMENT [None]
